FAERS Safety Report 8323178-6 (Version None)
Quarter: 2012Q2

REPORT INFORMATION
  Report Type: 
  Country: None (occurrence: None)
  Receive Date: 20120430
  Receipt Date: 20120420
  Transmission Date: 20120825
  Serious: Yes (Other)
  Sender: FDA-Public Use
  Company Number: US-ABBOTT-12P-163-0928076-00

PATIENT
  Sex: Female
  Weight: 57.204 kg

DRUGS (11)
  1. HUMIRA [Suspect]
     Indication: CROHN'S DISEASE
     Dates: start: 20100426, end: 20100927
  2. HYDROCHLOROTHIAZIDE [Concomitant]
     Indication: PRODUCT USED FOR UNKNOWN INDICATION
  3. HUMIRA [Suspect]
     Dosage: INDUCTION DOSE
     Route: 058
     Dates: start: 20120418, end: 20120418
  4. PROVENTIL [Concomitant]
     Indication: PRODUCT USED FOR UNKNOWN INDICATION
  5. MERCAPTOPURINE [Concomitant]
     Indication: CROHN'S DISEASE
     Dates: start: 20101201, end: 20110701
  6. ATENOLOL [Concomitant]
     Indication: BLOOD PRESSURE
  7. METRONIDAZOLE [Concomitant]
     Indication: PRODUCT USED FOR UNKNOWN INDICATION
  8. VITAMIN B-12 [Concomitant]
     Indication: PRODUCT USED FOR UNKNOWN INDICATION
  9. ORTHO TRI-CYCLEN [Concomitant]
     Indication: PRODUCT USED FOR UNKNOWN INDICATION
  10. ENTOCORT EC [Concomitant]
     Indication: CROHN'S DISEASE
     Dates: end: 20110201
  11. CIMZIA [Suspect]
     Indication: CROHN'S DISEASE
     Dates: start: 20101013, end: 20110701

REACTIONS (6)
  - RASH [None]
  - CROHN'S DISEASE [None]
  - NAUSEA [None]
  - FATIGUE [None]
  - GASTROINTESTINAL STOMA COMPLICATION [None]
  - ABDOMINAL PAIN [None]
